FAERS Safety Report 8785816 (Version 2)
Quarter: 2012Q4

REPORT INFORMATION
  Report Type: Report from Study
  Country: DE (occurrence: DE)
  Receive Date: 20120914
  Receipt Date: 20120925
  Transmission Date: 20130627
  Serious: Yes (Other)
  Sender: FDA-Public Use
  Company Number: DE-GLAXOSMITHKLINE-B0830444A

PATIENT
  Sex: Male

DRUGS (9)
  1. PAZOPANIB [Suspect]
     Indication: GASTRIC CANCER
     Dosage: 800MG per day
     Route: 048
     Dates: start: 20120516, end: 20120822
  2. 5-FLUOROURACIL [Suspect]
     Indication: GASTRIC CANCER
     Route: 065
     Dates: start: 20120516
  3. OXALIPLATIN [Suspect]
     Indication: GASTRIC CANCER
     Route: 065
     Dates: start: 20120516
  4. LEUCOVORIN [Suspect]
     Indication: GASTRIC CANCER
     Route: 065
     Dates: start: 20120516
  5. ENALAPRIL [Concomitant]
     Dosage: 10MG per day
  6. HCT [Concomitant]
     Dosage: 25MG per day
  7. ALLOPURINOL [Concomitant]
     Dosage: 200MG per day
  8. CONCOR [Concomitant]
     Dosage: 1.25MG per day
  9. PANTOZOL [Concomitant]
     Dosage: 40MG per day

REACTIONS (1)
  - Extrasystoles [Recovered/Resolved]
